FAERS Safety Report 13227676 (Version 2)
Quarter: 2017Q1

REPORT INFORMATION
  Report Type: Spontaneous
  Country: US (occurrence: US)
  Receive Date: 20170213
  Receipt Date: 20170323
  Transmission Date: 20170428
  Serious: Yes (Death, Other)
  Sender: FDA-Public Use
  Company Number: US-GILEAD-2017-0257527

PATIENT
  Age: 63 Year
  Sex: Female

DRUGS (4)
  1. ZYDELIG [Suspect]
     Active Substance: IDELALISIB
     Indication: B-CELL LYMPHOMA
     Dosage: 150 MG, BID
     Route: 065
     Dates: start: 201505, end: 201508
  2. RITUXIMAB [Concomitant]
     Active Substance: RITUXIMAB
     Indication: B-CELL LYMPHOMA
     Dosage: 375 MG/M2, Q1MONTH
     Route: 065
     Dates: start: 201505, end: 2015
  3. ZYDELIG [Suspect]
     Active Substance: IDELALISIB
     Dosage: 150 MG, QD
     Route: 065
     Dates: start: 201509, end: 2016
  4. RITUXIMAB [Concomitant]
     Active Substance: RITUXIMAB
     Dosage: DOSE ADJUSTED
     Dates: start: 2016

REACTIONS (2)
  - High grade B-cell lymphoma Burkitt-like lymphoma [Fatal]
  - Off label use [Recovered/Resolved]

NARRATIVE: CASE EVENT DATE: 201509
